FAERS Safety Report 8557937-1 (Version None)
Quarter: 2012Q3

REPORT INFORMATION
  Report Type: 
  Country: None (occurrence: None)
  Receive Date: 20120801
  Receipt Date: 20120730
  Transmission Date: 20120928
  Serious: Yes (Death, Hospitalization, Other)
  Sender: FDA-Public Use
  Company Number: PHFR2012GB003272

PATIENT
  Sex: Male
  Weight: 82 kg

DRUGS (3)
  1. CLOZARIL [Suspect]
     Indication: SCHIZOPHRENIA
     Dosage: 325 MG
     Route: 048
     Dates: start: 20021024
  2. SIMVASTATIN [Concomitant]
     Indication: BLOOD CHOLESTEROL
     Route: 048
  3. ATENOLOL [Concomitant]
     Indication: HYPERTENSION
     Dosage: 50 MG
     Route: 048

REACTIONS (14)
  - ARTERIOSCLEROSIS CORONARY ARTERY [None]
  - CONSTIPATION [None]
  - WHITE BLOOD CELL COUNT INCREASED [None]
  - GASTROINTESTINAL SOUNDS ABNORMAL [None]
  - VOMITING [None]
  - BLOOD ALKALINE PHOSPHATASE INCREASED [None]
  - LEFT VENTRICULAR HYPERTROPHY [None]
  - NAUSEA [None]
  - ALANINE AMINOTRANSFERASE INCREASED [None]
  - MYOCARDIAL ISCHAEMIA [None]
  - NEUTROPHIL COUNT INCREASED [None]
  - CARDIAC ARREST [None]
  - ABDOMINAL DISTENSION [None]
  - CHILLS [None]
